FAERS Safety Report 25250115 (Version 1)
Quarter: 2025Q2

REPORT INFORMATION
  Report Type: Spontaneous
  Country: FR (occurrence: FR)
  Receive Date: 20250429
  Receipt Date: 20250429
  Transmission Date: 20250717
  Serious: Yes (Death)
  Sender: ACCORD
  Company Number: None

PATIENT
  Age: 64 Year
  Sex: Male
  Weight: 55 kg

DRUGS (6)
  1. CARBOPLATIN [Suspect]
     Active Substance: CARBOPLATIN
     Indication: Lung adenocarcinoma
     Dosage: STRENGTH: 10 MG/ML, 510 MG AUC5
     Dates: start: 20250114, end: 20250204
  2. PEMETREXED [Suspect]
     Active Substance: PEMETREXED
     Indication: Lung adenocarcinoma
     Dosage: STRENGTH: 25 MG/ML, 850
     Dates: start: 20250114, end: 20250204
  3. NIVOLUMAB [Suspect]
     Active Substance: NIVOLUMAB
     Indication: Lung adenocarcinoma
     Dosage: STRENGTH: 10 MG/ML, 360 MG
     Dates: start: 20250114, end: 20250204
  4. APREPITANT [Concomitant]
     Active Substance: APREPITANT
     Indication: Vomiting
     Dates: start: 20250114, end: 20250206
  5. ONDANSETRON [Concomitant]
     Active Substance: ONDANSETRON
     Indication: Vomiting
     Dates: start: 20250114, end: 20250204
  6. PEGFILGRASTIM [Concomitant]
     Active Substance: PEGFILGRASTIM
     Indication: Granulocyte-colony stimulating factor test
     Dosage: D2 AND D3, SOLUTION
     Dates: start: 20250115, end: 20250206

REACTIONS (3)
  - Vomiting [Fatal]
  - Febrile bone marrow aplasia [Fatal]
  - Acute kidney injury [Fatal]

NARRATIVE: CASE EVENT DATE: 20250215
